FAERS Safety Report 4662330-8 (Version None)
Quarter: 2005Q2

REPORT INFORMATION
  Report Type: 
  Country: None (occurrence: None)
  Receive Date: 20050516
  Receipt Date: 20041216
  Transmission Date: 20051028
  Serious: Yes (Hospitalization)
  Sender: FDA-Public Use
  Company Number: US-2004-BP-14137BP

PATIENT
  Age: 68 Year
  Sex: Male

DRUGS (2)
  1. MOBIC [Suspect]
     Indication: ARTHRITIS
     Route: 048
     Dates: start: 20040101
  2. MOBIC [Suspect]
     Indication: ARTHRALGIA
     Route: 048
     Dates: start: 20041205

REACTIONS (4)
  - BLADDER OBSTRUCTION [None]
  - BLOOD URINE PRESENT [None]
  - HAEMOGLOBIN DECREASED [None]
  - URINARY RETENTION [None]
